FAERS Safety Report 9096731 (Version 2)
Quarter: 2013Q2

REPORT INFORMATION
  Report Type: Spontaneous
  Country: CA (occurrence: CA)
  Receive Date: 20130211
  Receipt Date: 20130417
  Transmission Date: 20140414
  Serious: Yes (Other)
  Sender: FDA-Public Use
  Company Number: CA-ELI_LILLY_AND_COMPANY-CA201302000499

PATIENT
  Age: 57 Year
  Sex: Female
  Weight: 98 kg

DRUGS (9)
  1. CYMBALTA [Suspect]
     Indication: DEPRESSION
     Dosage: 60 MG, QD
     Route: 048
     Dates: start: 20110613, end: 20120822
  2. CYMBALTA [Suspect]
     Dosage: 90 MG, QD
     Route: 048
     Dates: start: 20120822, end: 20120901
  3. AMANTADINE [Concomitant]
     Dosage: 100 MG, BID
  4. ATIVAN [Concomitant]
  5. GABAPENTIN [Concomitant]
     Dosage: 600 MG, BID
  6. GABAPENTIN [Concomitant]
     Dosage: 600 MG, QID
  7. MODAFINIL [Concomitant]
     Dosage: 100 MG, UNK
     Route: 051
  8. NEXIUM [Concomitant]
     Dosage: 40 MG, QD
  9. SYNTHROID [Concomitant]
     Dosage: 100 UG, QD

REACTIONS (10)
  - Loss of consciousness [Recovered/Resolved]
  - Serotonin syndrome [Recovered/Resolved]
  - Asthenia [Recovered/Resolved]
  - Diarrhoea [Recovered/Resolved]
  - Paraesthesia oral [Recovered/Resolved]
  - Somnolence [Recovered/Resolved]
  - Vomiting [Recovered/Resolved]
  - Feeling abnormal [Recovered/Resolved]
  - Fall [Recovered/Resolved]
  - Pain [Unknown]
